FAERS Safety Report 6307095-9 (Version None)
Quarter: 2009Q3

REPORT INFORMATION
  Report Type: 
  Country: None (occurrence: None)
  Receive Date: 20090812
  Receipt Date: 20090807
  Transmission Date: 20100115
  Serious: Yes (Other)
  Sender: FDA-Public Use
  Company Number: US-JNJCH-2009021439

PATIENT
  Age: 99 Year
  Sex: Male
  Weight: 65.8 kg

DRUGS (2)
  1. NEOSPORIN [Suspect]
     Indication: WOUND
     Dosage: TEXT:A FINGERTIP TWICE DAILY
     Route: 061
     Dates: start: 20090806, end: 20090807
  2. VERAPAMIL [Concomitant]
     Indication: HYPERTENSION
     Dosage: TEXT:120 MG ONCE EVERY TWO DAYS
     Route: 065

REACTIONS (7)
  - APPLICATION SITE ERYTHEMA [None]
  - APPLICATION SITE INFECTION [None]
  - APPLICATION SITE SCAB [None]
  - APPLICATION SITE SWELLING [None]
  - CONDITION AGGRAVATED [None]
  - EXPIRED DRUG ADMINISTERED [None]
  - WOUND SECRETION [None]
